FAERS Safety Report 14057221 (Version 6)
Quarter: 2020Q2

REPORT INFORMATION
  Report Type: Report from Study
  Country: DE (occurrence: DE)
  Receive Date: 20171006
  Receipt Date: 20200623
  Transmission Date: 20200713
  Serious: Yes (Death, Hospitalization, Other)
  Sender: FDA-Public Use
  Company Number: DE-BRISTOL-MYERS SQUIBB COMPANY-BMS-2017-083378

PATIENT
  Age: 67 Year
  Sex: Male

DRUGS (18)
  1. RAMIPRIL. [Concomitant]
     Active Substance: RAMIPRIL
     Indication: CARDIOVASCULAR DISORDER
     Dosage: 1.25 MG, UNK
     Route: 065
  2. ESCITALOPRAM [Concomitant]
     Active Substance: ESCITALOPRAM OXALATE
     Indication: MALIGNANT NEOPLASM PROGRESSION
     Dosage: 20 MG, UNK
     Route: 065
  3. TORASEMID [Concomitant]
     Active Substance: TORSEMIDE
     Indication: CARDIOVASCULAR DISORDER
     Dosage: 5 MG, UNK
     Route: 065
  4. METOPROLOL TARTRATE. [Concomitant]
     Active Substance: METOPROLOL TARTRATE
     Indication: CARDIOVASCULAR DISORDER
     Dosage: 95 MG, UNK
     Route: 065
  5. METOCLOPRAMIDE. [Concomitant]
     Active Substance: METOCLOPRAMIDE
     Indication: PROPHYLAXIS
     Dosage: 30 MG, UNK
     Route: 065
  6. CLEXANE [Concomitant]
     Active Substance: ENOXAPARIN SODIUM
     Indication: CARDIOVASCULAR DISORDER
     Dosage: 1.2 MG, UNK
     Route: 065
  7. METOPROLOL TARTRATE. [Concomitant]
     Active Substance: METOPROLOL TARTRATE
     Indication: CEREBROVASCULAR DISORDER
     Route: 065
  8. CLEXANE [Concomitant]
     Active Substance: ENOXAPARIN SODIUM
     Indication: CEREBROVASCULAR DISORDER
     Route: 065
  9. TORASEMID [Concomitant]
     Active Substance: TORSEMIDE
     Indication: CEREBROVASCULAR DISORDER
     Route: 065
  10. TILIDIN [Concomitant]
     Active Substance: NALOXONE HYDROCHLORIDE\TILIDINE HYDROCHLORIDE
     Indication: MALIGNANT NEOPLASM PROGRESSION
     Dosage: 16 MG, UNK
     Route: 065
  11. CRATAEGUTT [Concomitant]
     Indication: CARDIOVASCULAR DISORDER
     Dosage: 900 MG, UNK
     Route: 065
  12. METAMIZOLE SODIUM [Concomitant]
     Active Substance: METAMIZOLE SODIUM
     Indication: MALIGNANT NEOPLASM PROGRESSION
     Dosage: 2000 MG, UNK
     Route: 065
  13. RANITIC [Concomitant]
     Active Substance: RANITIDINE HYDROCHLORIDE
     Indication: PROPHYLAXIS
     Dosage: 300 MG, UNK
     Route: 065
  14. ATORVASTATIN [Concomitant]
     Active Substance: ATORVASTATIN
     Indication: PRODUCT USED FOR UNKNOWN INDICATION
     Dosage: 20 MG, UNK
     Route: 065
  15. RAMIPRIL. [Concomitant]
     Active Substance: RAMIPRIL
     Indication: CEREBROVASCULAR DISORDER
     Route: 065
  16. CRATAEGUTT [Concomitant]
     Indication: CEREBROVASCULAR DISORDER
     Route: 065
  17. POTASSIUM [Concomitant]
     Active Substance: POTASSIUM
     Indication: MALIGNANT NEOPLASM PROGRESSION
     Dosage: 1565.66 MG, UNK
     Route: 065
  18. NIVOLUMAB [Suspect]
     Active Substance: NIVOLUMAB
     Indication: NON-SMALL CELL LUNG CANCER
     Dosage: 3 MILLIGRAM/KILOGRAM, Q2WK
     Route: 042
     Dates: start: 20170830, end: 20170928

REACTIONS (8)
  - General physical health deterioration [Unknown]
  - Malignant neoplasm progression [Fatal]
  - Nausea [Unknown]
  - Pneumonia [Recovered/Resolved]
  - Hypokalaemia [Unknown]
  - Dehydration [Unknown]
  - Urinary tract infection [Unknown]
  - Pyrexia [Unknown]

NARRATIVE: CASE EVENT DATE: 20170914
